FAERS Safety Report 8300150-3 (Version None)
Quarter: 2012Q2

REPORT INFORMATION
  Report Type: 
  Country: None (occurrence: None)
  Receive Date: 20120420
  Receipt Date: 20120417
  Transmission Date: 20120825
  Serious: No
  Sender: FDA-Public Use
  Company Number: US-PFIZER INC-2012056546

PATIENT
  Age: 71 Year
  Sex: Female

DRUGS (1)
  1. EPIPEN [Suspect]
     Route: 030

REACTIONS (4)
  - LIGAMENT INJURY [None]
  - PAIN IN EXTREMITY [None]
  - ACCIDENTAL EXPOSURE [None]
  - INJURY ASSOCIATED WITH DEVICE [None]
